FAERS Safety Report 15411001 (Version 4)
Quarter: 2019Q2

REPORT INFORMATION
  Report Type: Spontaneous
  Country: CA (occurrence: CA)
  Receive Date: 20180921
  Receipt Date: 20190405
  Transmission Date: 20190711
  Serious: Yes (Hospitalization)
  Sender: FDA-Public Use
  Company Number: CA-ORION CORPORATION ORION PHARMA-TREX2018-2717

PATIENT
  Age: 58 Year
  Sex: Female

DRUGS (5)
  1. METHOTREXATE (TRADE NAME UNKNOWN) [Suspect]
     Active Substance: METHOTREXATE
     Indication: PRODUCT USED FOR UNKNOWN INDICATION
     Dosage: 2.5 MG; 10 TABLETS
     Route: 065
     Dates: start: 2016
  2. EUROFOLIC [Suspect]
     Active Substance: LEVOLEUCOVORIN CALCIUM
     Indication: PRODUCT USED FOR UNKNOWN INDICATION
     Dosage: 30 MG WEEKLY, FOR 6 DAYS OF THE WEEK,NOT ON DAY OF TAKING METHOTREXATE.
     Route: 065
     Dates: start: 2016
  3. MINT DULOXETINE [Concomitant]
     Indication: ANXIETY
  4. MINT DULOXETINE [Concomitant]
     Indication: DEPRESSION
     Dosage: 60 MG, (2 CAPSULES)
     Route: 065
     Dates: start: 2008
  5. ENTOCORT EC [Suspect]
     Active Substance: BUDESONIDE
     Indication: PRODUCT USED FOR UNKNOWN INDICATION
     Dosage: 3 MG (2 CAPSULES)
     Route: 065
     Dates: start: 2016

REACTIONS (2)
  - Drug ineffective [Unknown]
  - Condition aggravated [Unknown]

NARRATIVE: CASE EVENT DATE: 2016
